FAERS Safety Report 8733491 (Version 2)
Quarter: 2012Q4

REPORT INFORMATION
  Report Type: 
  Country: US (occurrence: US)
  Receive Date: 20120821
  Receipt Date: 20121226
  Transmission Date: 20130627
  Serious: Yes (Hospitalization)
  Sender: FDA-Public Use
  Company Number: US-BAYER-2012-083093

PATIENT
  Age: 38 Year
  Sex: Female

DRUGS (9)
  1. YAZ [Suspect]
     Indication: HEAVY PERIODS
     Dosage: UNK
     Dates: start: 200804, end: 200808
  2. YASMIN [Suspect]
  3. VALTREX [Concomitant]
     Indication: HERPES NOS
     Dosage: dailyUNK
     Dates: start: 200804
  4. IRON [Concomitant]
     Indication: ANEMIA
     Dosage: UNK
     Route: 048
     Dates: start: 200805
  5. NEXIUM [Concomitant]
     Indication: GERD
     Dosage: 40 mg, QD
     Route: 048
     Dates: start: 200808
  6. HYDROCODONE [Concomitant]
  7. TORADOL [Concomitant]
  8. MORPHINE [Concomitant]
  9. XANAX [Concomitant]

REACTIONS (7)
  - Pulmonary embolism [None]
  - Pain [None]
  - Emotional distress [None]
  - Pain [None]
  - Injury [None]
  - Anxiety [None]
  - General physical health deterioration [None]
